FAERS Safety Report 5409252-2 (Version None)
Quarter: 2007Q3

REPORT INFORMATION
  Report Type: 
  Country: None (occurrence: None)
  Receive Date: 20070809
  Receipt Date: 20070803
  Transmission Date: 20080115
  Serious: Yes (Life-Threatening, Hospitalization)
  Sender: FDA-Public Use
  Company Number: PHHO2007ES11063

PATIENT
  Age: 65 Year
  Sex: Female

DRUGS (4)
  1. LBH589 [Suspect]
     Indication: CHRONIC MYELOID LEUKAEMIA
     Dosage: NO TREATMENT
  2. DICLOFENAC [Suspect]
     Dosage: 50MG EVERY 8 HOURS
     Dates: start: 20070629, end: 20070703
  3. HYDROXYUREA [Concomitant]
  4. OMEPRAZOLE [Concomitant]

REACTIONS (7)
  - CHRONIC MYELOID LEUKAEMIA [None]
  - GASTRITIS HAEMORRHAGIC [None]
  - HAEMATEMESIS [None]
  - MELAENA [None]
  - PLATELET COUNT DECREASED [None]
  - TUMOUR ASSOCIATED FEVER [None]
  - WHITE BLOOD CELL COUNT INCREASED [None]
